FAERS Safety Report 10241893 (Version 2)
Quarter: 2014Q2

REPORT INFORMATION
  Report Type: Spontaneous
  Country: US (occurrence: None)
  Receive Date: 20140612
  Receipt Date: 20140623
  Transmission Date: 20141212
  Serious: Yes (Other)
  Sender: FDA-Public Use
  Company Number: UNT-2014-001662

PATIENT
  Age: 75 Year
  Sex: Female
  Weight: 66.2 kg

DRUGS (15)
  1. ORENITRAM [Suspect]
     Indication: COR PULMONALE CHRONIC
     Route: 048
     Dates: start: 20140507
  2. REMODULIN (TREPROSTINIL SODIUM) [Concomitant]
  3. REVATIO (SILDENAFIL CITRATE) [Concomitant]
  4. GABAPENTIN (GABAPENTIN) [Concomitant]
  5. ERYTHROMYCIN (ERYTHROMYCIN) [Concomitant]
  6. TRAVATAN (TRAVOPROST) [Concomitant]
  7. COMBIGAN (BRIMONIDINE TARTRATE,TIMOLOL MALEATE) [Concomitant]
  8. FOLIC ACID (FOLIC ACID) [Concomitant]
  9. FERROUS SULFATE (FERROUS SULFATE) [Concomitant]
  10. ARANESP (DARBEPOETIN ALFA) [Concomitant]
  11. VITAMIN D3 (COLECALCIFEROL) [Concomitant]
  12. OXYCONTIN (OXYCODONE HYDROCHLORIDE) [Concomitant]
  13. LASIX (FUROSEMIDE) [Concomitant]
  14. PLAVIX (CLOPIDOGREL BISULFATE) [Concomitant]
  15. SILDENAFIL (SILDENAFIL) [Concomitant]

REACTIONS (2)
  - Cataract [None]
  - Eye excision [None]
